FAERS Safety Report 19397404 (Version 3)
Quarter: 2022Q2

REPORT INFORMATION
  Report Type: Other
  Country: CA (occurrence: None)
  Receive Date: 20210609
  Receipt Date: 20220520
  Transmission Date: 20220721
  Serious: Yes (Hospitalization, Other)
  Sender: FDA-Public Use
  Company Number: CA-ROCHE-2626318

PATIENT
  Sex: Male
  Weight: 48.7 kg

DRUGS (6)
  1. MODERNA COVID-19 VACCINE [Suspect]
     Active Substance: ELASOMERAN
     Indication: COVID-19
     Route: 065
  2. ZELBORAF [Suspect]
     Active Substance: VEMURAFENIB
     Indication: Hairy cell leukaemia
     Route: 048
     Dates: start: 20200722
  3. RITUXAN [Suspect]
     Active Substance: RITUXIMAB
     Indication: Hairy cell leukaemia
     Route: 042
     Dates: start: 2014
  4. CLADRIBINE [Concomitant]
     Active Substance: CLADRIBINE
  5. EUCERIN [Concomitant]
     Active Substance: ENSULIZOLE\EUCERIN\OCTINOXATE\OCTISALATE\TITANIUM DIOXIDE\ZINC OXIDE
     Indication: Rash
  6. EUCERIN [Concomitant]
     Active Substance: ENSULIZOLE\EUCERIN\OCTINOXATE\OCTISALATE\TITANIUM DIOXIDE\ZINC OXIDE
     Indication: Pruritus

REACTIONS (21)
  - Agranulocytosis [Unknown]
  - Fall [Unknown]
  - Femur fracture [Unknown]
  - Off label use [Unknown]
  - Benign prostatic hyperplasia [Recovered/Resolved]
  - Overgrowth bacterial [Unknown]
  - Osteoporosis [Unknown]
  - Gastrointestinal lymphoma [Unknown]
  - Pancytopenia [Unknown]
  - Asthenia [Unknown]
  - Fatigue [Unknown]
  - Dyspnoea exertional [Unknown]
  - Pruritus [Unknown]
  - Rash [Recovered/Resolved]
  - Liver palpable [Unknown]
  - Anaemia [Unknown]
  - Injection site pain [Recovered/Resolved]
  - Off label use [Unknown]
  - Musculoskeletal pain [Unknown]
  - Rash [Not Recovered/Not Resolved]
  - Pruritus [Not Recovered/Not Resolved]

NARRATIVE: CASE EVENT DATE: 20140101
